FAERS Safety Report 17890137 (Version 1)
Quarter: 2020Q2

REPORT INFORMATION
  Report Type: Report from Study
  Country: DE (occurrence: DE)
  Receive Date: 20200612
  Receipt Date: 20200612
  Transmission Date: 20200714
  Serious: Yes (Congenital Anomaly)
  Sender: FDA-Public Use
  Company Number: DE-ASTRAZENECA-2020SE73496

PATIENT

DRUGS (8)
  1. MACROGOL [Suspect]
     Active Substance: POLYETHYLENE GLYCOLS
     Route: 064
  2. ACETYLSALICYLIC ACID [Suspect]
     Active Substance: ASPIRIN
     Route: 064
  3. OMEPRAZOL [Suspect]
     Active Substance: OMEPRAZOLE
     Indication: AORTIC DISSECTION
     Route: 064
  4. BISOPROLOL [Suspect]
     Active Substance: BISOPROLOL
     Indication: HYPERTENSION
     Dosage: 2.5MG UNKNOWN
     Route: 064
  5. AMIODARONE [Suspect]
     Active Substance: AMIODARONE
     Route: 064
  6. AMITRIPTYLINE [Suspect]
     Active Substance: AMITRIPTYLINE
     Route: 064
  7. BUPRENORPHINE. [Suspect]
     Active Substance: BUPRENORPHINE
     Route: 064
  8. GABAPENTIN. [Suspect]
     Active Substance: GABAPENTIN
     Route: 064

REACTIONS (3)
  - Atrial septal defect [Unknown]
  - Small for dates baby [Unknown]
  - Ventricular septal defect [Unknown]
